FAERS Safety Report 6078337-2 (Version None)
Quarter: 2009Q1

REPORT INFORMATION
  Report Type: 
  Country: None (occurrence: None)
  Receive Date: 20090213
  Receipt Date: 20090203
  Transmission Date: 20090719
  Serious: Yes (Death, Life-Threatening, Other)
  Sender: FDA-Public Use
  Company Number: GB-JNJFOC-20090106858

PATIENT
  Age: 77 Year
  Sex: Female
  Weight: 73 kg

DRUGS (11)
  1. REMICADE [Suspect]
     Indication: RHEUMATOID ARTHRITIS
     Route: 042
  2. METHOTREXATE [Concomitant]
  3. PREDNISOLONE [Concomitant]
  4. ALENDRONATE SODIUM [Concomitant]
  5. AMTRIPTYLINE [Concomitant]
  6. ASCORBIC ACID [Concomitant]
  7. CALCICHEW [Concomitant]
  8. ENALAPRIL [Concomitant]
  9. FOLIC ACID [Concomitant]
  10. METOCLOPRAMIDE [Concomitant]
  11. ROFECOXIB [Concomitant]

REACTIONS (3)
  - ALVEOLITIS FIBROSING [None]
  - NON-HODGKIN'S LYMPHOMA [None]
  - PNEUMONIA [None]
